FAERS Safety Report 6512120-6 (Version None)
Quarter: 2009Q4

REPORT INFORMATION
  Report Type: 
  Country: None (occurrence: None)
  Receive Date: 20091222
  Receipt Date: 20090604
  Transmission Date: 20100525
  Serious: No
  Sender: FDA-Public Use
  Company Number: US-ASTRAZENECA-2009UW14301

PATIENT
  Age: 68 Year
  Sex: Male
  Weight: 78.9 kg

DRUGS (4)
  1. CRESTOR [Suspect]
     Dosage: 10 - 20 MG
     Route: 048
  2. INSULIN [Concomitant]
  3. THYROID TAB [Concomitant]
  4. RAMIPRIL [Concomitant]

REACTIONS (3)
  - ARTHRALGIA [None]
  - MYALGIA [None]
  - OEDEMA PERIPHERAL [None]
